FAERS Safety Report 25990026 (Version 1)
Quarter: 2025Q4

REPORT INFORMATION
  Report Type: Spontaneous
  Country: US (occurrence: None)
  Receive Date: 20251102
  Receipt Date: 20251102
  Transmission Date: 20260118
  Serious: No
  Sender: FDA-CTU
  Company Number: None

PATIENT
  Age: 45 Year
  Sex: Female
  Weight: 63 kg

DRUGS (5)
  1. ZYRTEC [Suspect]
     Active Substance: CETIRIZINE HYDROCHLORIDE
     Dates: start: 20130101, end: 20251102
  2. FLONASE [Concomitant]
     Active Substance: FLUTICASONE PROPIONATE
  3. Claritin or Zyrtec [Concomitant]
  4. Fish Oil 1000mg [Concomitant]
  5. Magnesium Glycinate 200mg [Concomitant]

REACTIONS (4)
  - Pruritus [None]
  - Withdrawal syndrome [None]
  - Fatigue [None]
  - Somnolence [None]

NARRATIVE: CASE EVENT DATE: 20251102
